FAERS Safety Report 5989392-X (Version None)
Quarter: 2008Q4

REPORT INFORMATION
  Report Type: 
  Country: None (occurrence: None)
  Receive Date: 20081210
  Receipt Date: 20081201
  Transmission Date: 20090506
  Serious: No
  Sender: FDA-Public Use
  Company Number: KR-ROCHE-600486

PATIENT
  Age: 24 Year
  Sex: Female

DRUGS (1)
  1. ROACCUTANE [Suspect]
     Indication: DRUG USE FOR UNKNOWN INDICATION
     Route: 048
     Dates: start: 20080918, end: 20081008

REACTIONS (2)
  - NO ADVERSE EVENT [None]
  - PREGNANCY [None]
